FAERS Safety Report 6056550-8 (Version None)
Quarter: 2009Q1

REPORT INFORMATION
  Report Type: 
  Country: None (occurrence: None)
  Receive Date: 20090126
  Receipt Date: 20090126
  Transmission Date: 20090719
  Serious: No
  Sender: FDA-Public Use
  Company Number: None

PATIENT
  Sex: Female
  Weight: 74.8435 kg

DRUGS (2)
  1. PRED FORTE [Suspect]
     Indication: INTRAOCULAR LENS IMPLANT
     Dosage: 1 DROP LEFT EYE 4 X DAILY
     Dates: start: 20081019
  2. PRED FORTE [Suspect]
     Indication: INTRAOCULAR LENS IMPLANT
     Dosage: 1 DROP LEFT EYE 4 X DAILY
     Dates: start: 20081120

REACTIONS (5)
  - CEREBROVASCULAR ACCIDENT [None]
  - DIARRHOEA [None]
  - GAIT DISTURBANCE [None]
  - SPEECH DISORDER [None]
  - TREMOR [None]
